FAERS Safety Report 25500682 (Version 2)
Quarter: 2025Q3

REPORT INFORMATION
  Report Type: Spontaneous
  Country: JP (occurrence: JP)
  Receive Date: 20250701
  Receipt Date: 20250814
  Transmission Date: 20251020
  Serious: Yes (Other)
  Sender: BAYER HEALTHCARE PHARMACEUTICALS INC.
  Company Number: JP-BAYER-2025A086663

PATIENT
  Age: 71 Year
  Sex: Male

DRUGS (2)
  1. NUBEQA [Suspect]
     Active Substance: DAROLUTAMIDE
     Indication: Hormone-dependent prostate cancer
     Dates: start: 20250122
  2. DOCETAXEL [Suspect]
     Active Substance: DOCETAXEL

REACTIONS (3)
  - Neuropathy peripheral [Recovering/Resolving]
  - Alopecia [None]
  - Nail deformation [Unknown]

NARRATIVE: CASE EVENT DATE: 20250214
